FAERS Safety Report 22875457 (Version 2)
Quarter: 2023Q4

REPORT INFORMATION
  Report Type: Report from Study
  Country: NL (occurrence: NL)
  Receive Date: 20230829
  Receipt Date: 20231128
  Transmission Date: 20240110
  Serious: Yes (Hospitalization)
  Sender: FDA-Public Use
  Company Number: NL-ABBVIE-5383253

PATIENT
  Sex: Male

DRUGS (11)
  1. CARBIDOPA\LEVODOPA [Suspect]
     Active Substance: CARBIDOPA\LEVODOPA
     Indication: Parkinson^s disease
     Dosage: MD: 7.5 ML, CD: 4.3 ML/H, ED: 2.0 ML, ND: 1.0 ML, CND: 2.4 ML/H, END: 1.0 ML
     Route: 050
     Dates: start: 20231120
  2. CARBIDOPA\LEVODOPA [Suspect]
     Active Substance: CARBIDOPA\LEVODOPA
     Dosage: MD: 8.0 ML, CD: 4.3 ML/H, ED: 2.0 ML?DURATION TEXT: REMAINS AT 24 HOURS
     Route: 050
  3. CARBIDOPA\LEVODOPA [Suspect]
     Active Substance: CARBIDOPA\LEVODOPA
     Dosage: MD: 8.0 ML, CD: 4.3 ML/H, ED: 2.0 ML, ND: 0.0 ML, CND: 2.4 ML/H, END: 1.0 ML
     Route: 050
  4. CARBIDOPA\LEVODOPA [Suspect]
     Active Substance: CARBIDOPA\LEVODOPA
     Dosage: MD: 8.0 ML, CD: 4.1 ML/H, ED: 2.0 ML, ND: 0.0 ML, CND: 2.4 ML/H, END: 1.0 ML?DURATION TEXT: REMAI...
     Route: 050
  5. CARBIDOPA\LEVODOPA [Suspect]
     Active Substance: CARBIDOPA\LEVODOPA
     Dosage: DURATION TEXT: REMAINS AT 24 HOURS
     Route: 050
     Dates: start: 20220829
  6. CARBIDOPA\LEVODOPA [Suspect]
     Active Substance: CARBIDOPA\LEVODOPA
     Dosage: MD: 8.0 ML, CD: 4.3 ML/H, ED: 2.0 ML
     Route: 050
  7. CARBIDOPA\LEVODOPA [Suspect]
     Active Substance: CARBIDOPA\LEVODOPA
     Dosage: MD: 8.0 ML, CD: 4.3 ML/H, ED: 2.0 ML, ND: 0.0 ML, CND: 2.4 ML/H, END: 1.0 ML?DURATION TEXT: REMAI...
     Route: 050
  8. CARBIDOPA\LEVODOPA [Suspect]
     Active Substance: CARBIDOPA\LEVODOPA
     Dosage: MD: 8.0 ML, CD: 4.1 ML/H, ED: 2.0 ML, CND: 2.4 ML/H, END: 1.0 ML?DURATION TEXT: REMAINS AT 24 HOURS
     Route: 050
  9. CARBIDOPA\LEVODOPA [Suspect]
     Active Substance: CARBIDOPA\LEVODOPA
     Dosage: MD: 8.0 ML, CD: 4.1 ML/H, ED: 2.0 ML, ND: 0.0 ML, CND: 2.4 ML/H, END: 1.0 ML?DURATION TEXT: REMAI...
     Route: 050
  10. SINEMET [Concomitant]
     Active Substance: CARBIDOPA\LEVODOPA
     Indication: Parkinson^s disease
     Dosage: 2 GRAM?FREQUENCY TEXT: 8 X 2 TABLETS
     Route: 048
     Dates: end: 20220829
  11. POLYETHYLENE GLYCOLS [Concomitant]
     Active Substance: POLYETHYLENE GLYCOLS
     Indication: Constipation
     Dosage: FREQUENCY TEXT: 4 TO 8 SACHETS PER DAY
     Route: 048

REACTIONS (16)
  - Illness [Recovered/Resolved]
  - Urinary tract infection [Recovered/Resolved]
  - Fibroma [Not Recovered/Not Resolved]
  - Muscle rigidity [Not Recovered/Not Resolved]
  - Dyskinesia [Not Recovered/Not Resolved]
  - Gait disturbance [Not Recovered/Not Resolved]
  - Loss of personal independence in daily activities [Not Recovered/Not Resolved]
  - Poisoning [Recovered/Resolved]
  - Nocturia [Not Recovered/Not Resolved]
  - Incontinence [Not Recovered/Not Resolved]
  - Cognitive disorder [Not Recovered/Not Resolved]
  - Diabetes mellitus [Recovering/Resolving]
  - Faeces hard [Not Recovered/Not Resolved]
  - Tension [Not Recovered/Not Resolved]
  - Weight decreased [Recovered/Resolved]
  - On and off phenomenon [Not Recovered/Not Resolved]
